FAERS Safety Report 10313876 (Version 3)
Quarter: 2014Q3

REPORT INFORMATION
  Report Type: Spontaneous
  Country: US (occurrence: US)
  Receive Date: 20140718
  Receipt Date: 20140804
  Transmission Date: 20150326
  Serious: Yes (Hospitalization)
  Sender: FDA-Public Use
  Company Number: US-FRI-1000058946

PATIENT
  Age: 53 Year
  Sex: Male
  Weight: 58.96 kg

DRUGS (4)
  1. MVI [Concomitant]
     Active Substance: VITAMINS
     Dosage: DAILY
  2. ASENAPINE [Suspect]
     Active Substance: ASENAPINE
     Indication: PSYCHOTIC DISORDER
     Dosage: 10 MG
     Route: 060
     Dates: start: 20121223, end: 20121226
  3. ASENAPINE [Suspect]
     Active Substance: ASENAPINE
     Dosage: 10 MG
     Route: 060
     Dates: start: 20121227, end: 20121229
  4. THIAMINE [Concomitant]
     Active Substance: THIAMINE
     Dosage: 100 MG

REACTIONS (2)
  - Off label use [Recovered/Resolved]
  - Rash [Recovering/Resolving]

NARRATIVE: CASE EVENT DATE: 20121223
